FAERS Safety Report 10438165 (Version 1)
Quarter: 2014Q3

REPORT INFORMATION
  Report Type: Spontaneous
  Country: US (occurrence: US)
  Receive Date: 20140908
  Receipt Date: 20140908
  Transmission Date: 20150326
  Serious: No
  Sender: FDA-Public Use
  Company Number: US-BRISTOL-MYERS SQUIBB COMPANY-21084264

PATIENT
  Age: 38 Year
  Sex: Female
  Weight: 54.87 kg

DRUGS (7)
  1. NIZORAL [Concomitant]
     Active Substance: KETOCONAZOLE
  2. LEVOTHYROXINE [Concomitant]
     Active Substance: LEVOTHYROXINE
  3. CIPRO [Concomitant]
     Active Substance: CIPROFLOXACIN HYDROCHLORIDE
  4. PHENERGAN [Concomitant]
     Active Substance: PROMETHAZINE HYDROCHLORIDE
  5. ABILIFY [Suspect]
     Active Substance: ARIPIPRAZOLE
  6. DEMEROL [Concomitant]
     Active Substance: MEPERIDINE HYDROCHLORIDE
  7. NYSTATIN. [Concomitant]
     Active Substance: NYSTATIN
     Dosage: ORAL SOLUTION

REACTIONS (2)
  - Wrong technique in drug usage process [Unknown]
  - Medical device removal [Unknown]
